FAERS Safety Report 7929840-9 (Version None)
Quarter: 2011Q4

REPORT INFORMATION
  Report Type: 
  Country: None (occurrence: None)
  Receive Date: 20111118
  Receipt Date: 20111118
  Transmission Date: 20120403
  Serious: Yes (Life-Threatening)
  Sender: FDA-Public Use
  Company Number: None

PATIENT
  Age: 57 Year
  Sex: Female
  Weight: 129 kg

DRUGS (4)
  1. TRAMADOL HCL [Suspect]
     Indication: BONE PAIN
     Dosage: 50 MG/600, 2 TABLE A DAY
     Dates: start: 20111027
  2. TRAMADOL HCL [Suspect]
     Indication: NEURALGIA
     Dosage: 50 MG/600, 2 TABLE A DAY
     Dates: start: 20111027
  3. TRAMADOL HCL [Suspect]
     Indication: BONE PAIN
     Dosage: 50 MG/600, 2 TABLE A DAY
     Dates: start: 20110923
  4. TRAMADOL HCL [Suspect]
     Indication: NEURALGIA
     Dosage: 50 MG/600, 2 TABLE A DAY
     Dates: start: 20110923

REACTIONS (9)
  - HEADACHE [None]
  - DIZZINESS [None]
  - DECREASED APPETITE [None]
  - SENSATION OF HEAVINESS [None]
  - NAUSEA [None]
  - ASTHENIA [None]
  - INSOMNIA [None]
  - HYPERHIDROSIS [None]
  - DEPRESSION [None]
